FAERS Safety Report 7494970-5 (Version None)
Quarter: 2011Q2

REPORT INFORMATION
  Report Type: 
  Country: None (occurrence: None)
  Receive Date: 20110520
  Receipt Date: 20110504
  Transmission Date: 20111010
  Serious: No
  Sender: FDA-Public Use
  Company Number: US-B.I. PHARMACEUTICALS,INC./RIDGEFIELD-2011-BP-07609BP

PATIENT
  Sex: Female

DRUGS (9)
  1. ASPIRIN [Concomitant]
  2. VASOTEC [Concomitant]
  3. ACTOS [Concomitant]
  4. PRADAXA [Suspect]
     Indication: DRUG THERAPY CHANGED
     Dosage: 300 MG
  5. COREG [Concomitant]
  6. AMIODARONE HCL [Concomitant]
  7. SIMVASTATIN [Concomitant]
  8. LUMIGAN [Concomitant]
  9. COMBIGAN [Concomitant]

REACTIONS (3)
  - DYSPEPSIA [None]
  - ANGINA PECTORIS [None]
  - PAIN [None]
